FAERS Safety Report 8817696 (Version 2)
Quarter: 2013Q1

REPORT INFORMATION
  Report Type: Spontaneous
  Country: BR (occurrence: BR)
  Receive Date: 20121001
  Receipt Date: 20130207
  Transmission Date: 20140127
  Serious: Yes (Other)
  Sender: FDA-Public Use
  Company Number: BR-PFIZER INC-2012240322

PATIENT
  Sex: Female

DRUGS (2)
  1. DOSTINEX [Suspect]
     Indication: BLOOD PROLACTIN INCREASED
     Dosage: 1 DF, WEEKLY
     Route: 048
     Dates: start: 20120817, end: 201208
  2. DOSTINEX [Suspect]
     Dosage: 2 DF, WEEKLY
     Route: 048
     Dates: start: 201208, end: 201301

REACTIONS (8)
  - Dyspnoea [Unknown]
  - Headache [Unknown]
  - Urinary tract infection [Unknown]
  - Pleural disorder [Unknown]
  - Formication [Unknown]
  - Bursitis [Unknown]
  - Tendonitis [Unknown]
  - Influenza [Unknown]
